FAERS Safety Report 8903390 (Version 1)
Quarter: 2012Q4

REPORT INFORMATION
  Report Type: 
  Country: MX (occurrence: MX)
  Receive Date: 20121113
  Receipt Date: 20121113
  Transmission Date: 20130627
  Serious: Yes (Other)
  Sender: FDA-Public Use
  Company Number: PHHY2012MX104433

PATIENT
  Sex: Female

DRUGS (6)
  1. CO-DIOVAN [Suspect]
     Indication: HYPERTENSION
     Dosage: 1 DF (160/12.5mg) per day
     Dates: start: 200811
  2. EVISA [Concomitant]
     Dosage: UNK UKN, UNK
  3. NOOTROPIL [Concomitant]
     Dosage: UNK UKN, UNK
  4. DEBROMU [Concomitant]
     Dosage: UNK UKN, UNK
  5. CARET [Concomitant]
     Dosage: UNK UKN, UNK
  6. ATIVAN [Concomitant]
     Dosage: UNK UKN, UNK

REACTIONS (2)
  - Hypoxia [Not Recovered/Not Resolved]
  - Speech disorder [Not Recovered/Not Resolved]
